FAERS Safety Report 11948604 (Version 1)
Quarter: 2016Q1

REPORT INFORMATION
  Report Type: Spontaneous
  Country: KR (occurrence: None)
  Receive Date: 20160121
  Receipt Date: 20160121
  Transmission Date: 20160526
  Serious: Yes (Hospitalization)
  Sender: FDA-Public Use
  Company Number: None

PATIENT
  Age: 49 Year
  Sex: Female
  Weight: 66 kg

DRUGS (1)
  1. CISPLATIN. [Suspect]
     Active Substance: CISPLATIN
     Dates: end: 20151222

REACTIONS (6)
  - Urinary tract infection [None]
  - Chills [None]
  - Dysuria [None]
  - Diarrhoea [None]
  - Sepsis [None]
  - Pyrexia [None]

NARRATIVE: CASE EVENT DATE: 20151227
